FAERS Safety Report 18095281 (Version 1)
Quarter: 2020Q3

REPORT INFORMATION
  Report Type: Spontaneous
  Country: US (occurrence: US)
  Receive Date: 20200730
  Receipt Date: 20200730
  Transmission Date: 20201103
  Serious: Yes (Hospitalization)
  Sender: FDA-Public Use
  Company Number: US-B.I. PHARMACEUTICALS,INC./RIDGEFIELD-2020-US-038055

PATIENT
  Sex: Female

DRUGS (1)
  1. COMBIVENT [Suspect]
     Active Substance: ALBUTEROL SULFATE\IPRATROPIUM BROMIDE
     Indication: PRODUCT USED FOR UNKNOWN INDICATION
     Dosage: ONE INHALATION BEFORE BEDTIME
     Route: 065
     Dates: start: 202005

REACTIONS (2)
  - Mitral valve replacement [Recovered/Resolved]
  - Coronary artery bypass [Recovered/Resolved]

NARRATIVE: CASE EVENT DATE: 20200608
